FAERS Safety Report 23938958 (Version 1)
Quarter: 2024Q2

REPORT INFORMATION
  Report Type: Spontaneous
  Country: JP (occurrence: JP)
  Receive Date: 20240604
  Receipt Date: 20240604
  Transmission Date: 20240715
  Serious: Yes (Other)
  Sender: FDA-Public Use
  Company Number: JP-ONO-2024JP011464

PATIENT
  Age: 61 Year
  Sex: Male

DRUGS (2)
  1. OPDIVO [Suspect]
     Active Substance: NIVOLUMAB
     Indication: Non-small cell lung cancer recurrent
     Route: 041
  2. INFLIXIMAB [Suspect]
     Active Substance: INFLIXIMAB
     Indication: Product used for unknown indication
     Dosage: 5 MG/KG, 2 AND 6 WEEKS AFTER FIRST ADMINISTRATION AND THERE AFTER EVERY 8 WEEKS

REACTIONS (6)
  - Pericarditis constrictive [Unknown]
  - Right ventricular failure [Unknown]
  - Interstitial lung disease [Unknown]
  - Pleurisy [Unknown]
  - Hypergammaglobulinaemia [Unknown]
  - Pericardial calcification [Unknown]

NARRATIVE: CASE EVENT DATE: 20231201
